FAERS Safety Report 5031678-X (Version None)
Quarter: 2006Q2

REPORT INFORMATION
  Report Type: 
  Country: None (occurrence: None)
  Receive Date: 20060616
  Receipt Date: 20060602
  Transmission Date: 20061013
  Serious: Yes (Hospitalization)
  Sender: FDA-Public Use
  Company Number: US-2006-013144

PATIENT
  Age: 48 Year
  Sex: Female
  Weight: 63 kg

DRUGS (3)
  1. BETASERON [Suspect]
     Indication: RELAPSING-REMITTING MULTIPLE SCLEROSIS
     Dosage: 8 MIU, SUBCUTANEOUS
     Route: 058
     Dates: start: 19920101, end: 20060301
  2. PROCARDIA XL [Concomitant]
  3. DETROL - SLOW RELEASE (TOLTERODINE L-TARTRATE) [Concomitant]

REACTIONS (2)
  - DIALYSIS [None]
  - RENAL FAILURE ACUTE [None]
